FAERS Safety Report 6110872-0 (Version None)
Quarter: 2009Q1

REPORT INFORMATION
  Report Type: 
  Country: None (occurrence: None)
  Receive Date: 20090311
  Receipt Date: 20090301
  Transmission Date: 20090719
  Serious: Yes (Other)
  Sender: FDA-Public Use
  Company Number: DE-BAYER-200914255GPV

PATIENT
  Age: 35 Year
  Sex: Female
  Weight: 89 kg

DRUGS (3)
  1. AVELOX [Suspect]
     Indication: BRONCHITIS
     Dosage: TOTAL DAILY DOSE: 400 MG  UNIT DOSE: 400 MG
     Route: 065
     Dates: start: 20081014
  2. NORDETTE-28 [Concomitant]
     Indication: DRUG USE FOR UNKNOWN INDICATION
     Route: 065
  3. AMOXICILLIN AND CLAVULANATE POTASSIUM [Concomitant]
     Indication: BRONCHITIS
     Route: 065
     Dates: start: 20081006, end: 20081001

REACTIONS (4)
  - ANGIOEDEMA [None]
  - EYELID OEDEMA [None]
  - LIVIDITY [None]
  - SWELLING FACE [None]
